FAERS Safety Report 5766548-2 (Version None)
Quarter: 2008Q2

REPORT INFORMATION
  Report Type: 
  Country: None (occurrence: None)
  Receive Date: 20080612
  Receipt Date: 20080605
  Transmission Date: 20081010
  Serious: Yes (Life-Threatening, Hospitalization)
  Sender: FDA-Public Use
  Company Number: FR-SP-2008-01607

PATIENT
  Age: 68 Year
  Sex: Male
  Weight: 65 kg

DRUGS (3)
  1. IMMUCYST [Suspect]
     Indication: CARCINOMA IN SITU OF BLADDER
     Route: 065
     Dates: start: 20070623
  2. IMMUCYST [Suspect]
     Route: 065
     Dates: start: 20070623
  3. OFLOCET [Concomitant]
     Dosage: 2 TAB/DAY

REACTIONS (7)
  - CONTRACTED BLADDER [None]
  - CYSTITIS [None]
  - HYDRONEPHROSIS [None]
  - INCONTINENCE [None]
  - POLLAKIURIA [None]
  - RENAL FAILURE [None]
  - TUBERCULOSIS BLADDER [None]
